FAERS Safety Report 9232262 (Version 3)
Quarter: 2013Q2

REPORT INFORMATION
  Report Type: Spontaneous
  Country: US (occurrence: US)
  Receive Date: 20130415
  Receipt Date: 20130502
  Transmission Date: 20140414
  Serious: No
  Sender: FDA-Public Use
  Company Number: US-009507513-1304USA005482

PATIENT
  Age: 56 Year
  Sex: Female

DRUGS (3)
  1. PEGINTRON [Suspect]
     Indication: HEPATITIS C
     Dosage: UNK, QW
     Dates: start: 20130105
  2. RIBASPHERE [Suspect]
     Indication: HEPATITIS C
     Dosage: UNK
     Dates: start: 20130105
  3. VICTRELIS [Suspect]
     Indication: HEPATITIS C
     Route: 048

REACTIONS (8)
  - Injection site erythema [Recovering/Resolving]
  - Underdose [Unknown]
  - Device difficult to use [Unknown]
  - Device difficult to use [Unknown]
  - Product quality issue [Unknown]
  - Malaise [Unknown]
  - White blood cell count decreased [Unknown]
  - Stress [Unknown]
